FAERS Safety Report 4824561-3 (Version None)
Quarter: 2005Q4

REPORT INFORMATION
  Report Type: 
  Country: None (occurrence: None)
  Receive Date: 20051108
  Receipt Date: 20051026
  Transmission Date: 20060501
  Serious: Yes (Other)
  Sender: FDA-Public Use
  Company Number: RENA-11590

PATIENT
  Age: 73 Year
  Sex: Male

DRUGS (8)
  1. RENAGEL [Suspect]
     Indication: HYPERPHOSPHATAEMIA
  2. DETENSIEL [Concomitant]
  3. AMLOR [Concomitant]
  4. KARDEGIC [Concomitant]
  5. VASRAREL (TRIMETAZIDINE) [Concomitant]
  6. LEVOTHYROXINE SODIUM [Concomitant]
  7. ZOCOR [Concomitant]
  8. CALCIUM GLUCONATE [Concomitant]

REACTIONS (1)
  - ELECTROCARDIOGRAM QT PROLONGED [None]
